FAERS Safety Report 25452380 (Version 8)
Quarter: 2025Q4

REPORT INFORMATION
  Report Type: Report from Study
  Country: CO (occurrence: CO)
  Receive Date: 20250618
  Receipt Date: 20251223
  Transmission Date: 20260118
  Serious: Yes (Hospitalization)
  Sender: TAKEDA
  Company Number: CO-TAKEDA-2025TUS041880

PATIENT
  Age: 4 Year
  Sex: Male
  Weight: 20.5 kg

DRUGS (3)
  1. IDURSULFASE [Suspect]
     Active Substance: IDURSULFASE
     Indication: Mucopolysaccharidosis II
     Dosage: 10 MILLIGRAM, 1/WEEK
     Dates: start: 20220811
  2. IDURSULFASE [Suspect]
     Active Substance: IDURSULFASE
     Dosage: 10 MILLIGRAM, 1/WEEK
  3. IDURSULFASE [Suspect]
     Active Substance: IDURSULFASE
     Dosage: 10 MILLIGRAM, 1/WEEK

REACTIONS (6)
  - Bronchitis [Unknown]
  - Treatment noncompliance [Unknown]
  - Incorrect dose administered [Unknown]
  - Product prescribing error [Unknown]
  - Varicella [Unknown]
  - Weight increased [Unknown]

NARRATIVE: CASE EVENT DATE: 20250424
